FAERS Safety Report 14336904 (Version 1)
Quarter: 2017Q4

REPORT INFORMATION
  Report Type: Spontaneous
  Country: AU (occurrence: AU)
  Receive Date: 20171229
  Receipt Date: 20171229
  Transmission Date: 20180321
  Serious: Yes (Death)
  Sender: FDA-Public Use
  Company Number: AU-ACTELION-A-CH2017-164449

PATIENT
  Age: 19 Year
  Sex: Female

DRUGS (2)
  1. OPSUMIT [Suspect]
     Active Substance: MACITENTAN
     Indication: HEART DISEASE CONGENITAL
     Dosage: 10 MG, OD
     Route: 048
     Dates: start: 20170920, end: 20171217
  2. TADALAFIL [Suspect]
     Active Substance: TADALAFIL
     Indication: HEART DISEASE CONGENITAL
     Dosage: 20 MG, OD
     Route: 048
     Dates: start: 20171006, end: 20171217

REACTIONS (1)
  - Heart disease congenital [Fatal]

NARRATIVE: CASE EVENT DATE: 20171217
